FAERS Safety Report 9060140 (Version 1)
Quarter: 2013Q1

REPORT INFORMATION
  Report Type: Spontaneous
  Country: US (occurrence: None)
  Receive Date: 20130207
  Receipt Date: 20130207
  Transmission Date: 20140127
  Serious: No
  Sender: FDA-Public Use
  Company Number: None

PATIENT
  Age: 63 Year
  Sex: Male

DRUGS (1)
  1. XELODA [Suspect]
     Dosage: 2000MG BID FOR 14 DAYS, OFF FOR 7 DAYS
     Route: 048
     Dates: start: 20121204

REACTIONS (2)
  - Vomiting [None]
  - Malaise [None]
